FAERS Safety Report 16664999 (Version 1)
Quarter: 2019Q3

REPORT INFORMATION
  Report Type: Spontaneous
  Country: US (occurrence: US)
  Receive Date: 20190803
  Receipt Date: 20190803
  Transmission Date: 20191004
  Serious: No
  Sender: FDA-Public Use
  Company Number: US-JNJFOC-20190802164

PATIENT
  Age: 61 Year
  Sex: Female
  Weight: 70.37 kg

DRUGS (1)
  1. WOMENS ROGAINE UNSCENTED [Suspect]
     Active Substance: MINOXIDIL
     Indication: ALOPECIA
     Dosage: MIGHT BE A LITTLE LESS THAN A HALF CAPFUL ONCE DAILY
     Route: 061
     Dates: start: 201901, end: 201903

REACTIONS (2)
  - Dermatitis contact [Recovered/Resolved]
  - Underdose [Recovered/Resolved]

NARRATIVE: CASE EVENT DATE: 2019
